FAERS Safety Report 8397418-1 (Version None)
Quarter: 2012Q2

REPORT INFORMATION
  Report Type: 
  Country: None (occurrence: None)
  Receive Date: 20120531
  Receipt Date: 20120530
  Transmission Date: 20120825
  Serious: Yes (Hospitalization, Other)
  Sender: FDA-Public Use
  Company Number: FR-ACTELION-A-CH2011-58667

PATIENT
  Sex: Male

DRUGS (6)
  1. TELAPREVIR [Suspect]
     Indication: HEPATITIS C
     Dosage: UNK
     Route: 048
     Dates: start: 20111030, end: 20111118
  2. COPEGUS [Concomitant]
  3. TRACLEER [Suspect]
     Indication: PULMONARY ARTERIAL HYPERTENSION
     Dosage: 125 MG, BID
     Route: 048
     Dates: end: 20111118
  4. TRUVADA [Concomitant]
  5. ISENTRESS [Concomitant]
  6. PEGASYS [Concomitant]

REACTIONS (7)
  - DRUG LEVEL INCREASED [None]
  - CONFUSIONAL STATE [None]
  - FALL [None]
  - DRUG INTERACTION [None]
  - BALANCE DISORDER [None]
  - NAUSEA [None]
  - DIARRHOEA [None]
